FAERS Safety Report 7676444-1 (Version None)
Quarter: 2011Q3

REPORT INFORMATION
  Report Type: 
  Country: None (occurrence: None)
  Receive Date: 20110811
  Receipt Date: 20110804
  Transmission Date: 20111222
  Serious: Yes (Death)
  Sender: FDA-Public Use
  Company Number: US-CELGENEUS-163-21880-11043439

PATIENT
  Sex: Male

DRUGS (7)
  1. REVLIMID [Suspect]
     Indication: MYELODYSPLASTIC SYNDROME
     Dosage: 2.5 MILLIGRAM
     Route: 048
     Dates: start: 20100804, end: 20110405
  2. FLOMAX [Concomitant]
     Route: 048
     Dates: end: 20110405
  3. CARDURA [Concomitant]
     Route: 048
     Dates: end: 20110405
  4. ULORIC [Concomitant]
     Indication: GOUT
     Route: 048
     Dates: end: 20110405
  5. SYNTHROID [Concomitant]
     Indication: HYPOTHYROIDISM
     Route: 048
     Dates: end: 20110405
  6. NIFEDIPINE [Concomitant]
     Indication: BLOOD PRESSURE
     Route: 048
     Dates: end: 20110405
  7. LOSARTAN POTASSIUM [Concomitant]
     Indication: BLOOD PRESSURE
     Route: 048
     Dates: end: 20110405

REACTIONS (1)
  - SUDDEN DEATH [None]
